FAERS Safety Report 15929194 (Version 1)
Quarter: 2019Q1

REPORT INFORMATION
  Report Type: Spontaneous
  Country: US (occurrence: US)
  Receive Date: 20190206
  Receipt Date: 20190206
  Transmission Date: 20190417
  Serious: No
  Sender: FDA-Public Use
  Company Number: US-JNJFOC-20190132078

PATIENT
  Sex: Female

DRUGS (7)
  1. IMBRUVICA [Suspect]
     Active Substance: IBRUTINIB
     Indication: CHRONIC LYMPHOCYTIC LEUKAEMIA
     Route: 048
  2. LIPITOR [Concomitant]
     Active Substance: ATORVASTATIN CALCIUM
     Route: 048
  3. ECOTRIN [Concomitant]
     Active Substance: ASPIRIN
  4. NORVASC [Concomitant]
     Active Substance: AMLODIPINE BESYLATE
  5. CLEOCIN T [Concomitant]
     Active Substance: CLINDAMYCIN PHOSPHATE
     Dosage: 1 %, EXTERNAL SOULTION
  6. HYDRODIURIL [Concomitant]
     Active Substance: HYDROCHLOROTHIAZIDE
  7. ZYLOPRIM [Concomitant]
     Active Substance: ALLOPURINOL

REACTIONS (6)
  - Diverticulum intestinal [Unknown]
  - Lipid metabolism disorder [Unknown]
  - Essential hypertension [Unknown]
  - Haemorrhoids [Unknown]
  - Depression [Unknown]
  - Neutropenia [Unknown]
